FAERS Safety Report 24688756 (Version 2)
Quarter: 2025Q3

REPORT INFORMATION
  Report Type: Spontaneous
  Country: CA (occurrence: CA)
  Receive Date: 20241203
  Receipt Date: 20250919
  Transmission Date: 20251021
  Serious: Yes (Death, Life-Threatening, Hospitalization, Disabling, Other)
  Sender: Haleon PLC
  Company Number: CA-002147023-NVSC2024CA181687

PATIENT
  Age: 44 Year
  Sex: Female

DRUGS (205)
  1. DICLOFENAC POTASSIUM [Suspect]
     Active Substance: DICLOFENAC POTASSIUM
     Indication: Product used for unknown indication
     Route: 050
  2. DICLOFENAC POTASSIUM [Suspect]
     Active Substance: DICLOFENAC POTASSIUM
     Route: 048
  3. CELEBREX [Suspect]
     Active Substance: CELECOXIB
     Indication: Product used for unknown indication
     Route: 048
  4. CELECOXIB [Suspect]
     Active Substance: CELECOXIB
     Indication: Product used for unknown indication
     Route: 048
  5. FOSAMAX [Suspect]
     Active Substance: ALENDRONATE SODIUM
     Indication: Rheumatoid arthritis
  6. FOSAMAX [Suspect]
     Active Substance: ALENDRONATE SODIUM
  7. ACTEMRA [Suspect]
     Active Substance: TOCILIZUMAB
     Indication: Rheumatoid arthritis
     Route: 058
  8. ACTEMRA [Suspect]
     Active Substance: TOCILIZUMAB
     Route: 042
  9. ACTEMRA [Suspect]
     Active Substance: TOCILIZUMAB
     Route: 042
  10. ACTEMRA [Suspect]
     Active Substance: TOCILIZUMAB
     Route: 042
  11. ACTEMRA [Suspect]
     Active Substance: TOCILIZUMAB
     Route: 042
  12. ACTEMRA [Suspect]
     Active Substance: TOCILIZUMAB
     Route: 042
  13. ACTEMRA [Suspect]
     Active Substance: TOCILIZUMAB
     Route: 042
  14. ARAVA [Suspect]
     Active Substance: LEFLUNOMIDE
     Indication: Rheumatoid arthritis
     Route: 048
  15. REMICADE [Suspect]
     Active Substance: INFLIXIMAB
     Indication: Rheumatoid arthritis
     Route: 042
  16. REMICADE [Suspect]
     Active Substance: INFLIXIMAB
     Route: 042
  17. LYRICA [Suspect]
     Active Substance: PREGABALIN
     Indication: Product used for unknown indication
  18. APREPITANT [Suspect]
     Active Substance: APREPITANT
     Indication: Product used for unknown indication
     Route: 048
  19. ALENDRONIC ACID [Suspect]
     Active Substance: ALENDRONIC ACID
     Indication: Rheumatoid arthritis
  20. SULFASALAZINE [Suspect]
     Active Substance: SULFASALAZINE
     Indication: Product used for unknown indication
  21. SULFASALAZINE [Suspect]
     Active Substance: SULFASALAZINE
  22. SULFASALAZINE [Suspect]
     Active Substance: SULFASALAZINE
     Dosage: ROA: ORAL
  23. SULFASALAZINE [Suspect]
     Active Substance: SULFASALAZINE
  24. SULFASALAZINE [Suspect]
     Active Substance: SULFASALAZINE
  25. HYDROCORTISONE SODIUM SUCCINATE [Suspect]
     Active Substance: HYDROCORTISONE SODIUM SUCCINATE
     Indication: Rheumatoid arthritis
     Route: 048
  26. ADALIMUMAB [Suspect]
     Active Substance: ADALIMUMAB
     Indication: Product used for unknown indication
     Route: 058
  27. ADALIMUMAB [Suspect]
     Active Substance: ADALIMUMAB
     Indication: Psoriatic arthropathy
     Route: 048
  28. DOXYCYCLINE [Suspect]
     Active Substance: DOXYCYCLINE
     Indication: Product used for unknown indication
  29. BORAGE OIL [Suspect]
     Active Substance: BORAGE OIL
     Indication: Product used for unknown indication
  30. BORAGE OIL [Suspect]
     Active Substance: BORAGE OIL
  31. STELARA [Suspect]
     Active Substance: USTEKINUMAB
     Indication: Product used for unknown indication
     Route: 050
  32. STELARA [Suspect]
     Active Substance: USTEKINUMAB
     Indication: Psoriatic arthropathy
  33. CORTISONE ACETATE [Suspect]
     Active Substance: CORTISONE ACETATE
     Indication: Rheumatoid arthritis
  34. CORTISONE ACETATE [Suspect]
     Active Substance: CORTISONE ACETATE
  35. CIMZIA [Suspect]
     Active Substance: CERTOLIZUMAB PEGOL
     Indication: Rheumatoid arthritis
     Dosage: DOSE FORM:SOLUTION FOR INJECTION,  ROA:SUBCUTANEOUS 1 DOSAGE FORM, QD (1 EVERY 1 DAYS)
  36. CIMZIA [Suspect]
     Active Substance: CERTOLIZUMAB PEGOL
     Indication: Product used for unknown indication
     Dosage: DOSE FORM: SOLUTION FOR INJECTION, ROA: SUBCUTANEOUS, 1 DOSAGE FORM, QD (1 EVERY 1 DAYS)
  37. CIMZIA [Suspect]
     Active Substance: CERTOLIZUMAB PEGOL
  38. CIMZIA [Suspect]
     Active Substance: CERTOLIZUMAB PEGOL
  39. CIMZIA [Suspect]
     Active Substance: CERTOLIZUMAB PEGOL
  40. CIMZIA [Suspect]
     Active Substance: CERTOLIZUMAB PEGOL
  41. SULFASALAZINE [Suspect]
     Active Substance: SULFASALAZINE
     Indication: Rheumatoid arthritis
     Route: 048
  42. SULFASALAZINE [Suspect]
     Active Substance: SULFASALAZINE
     Route: 048
  43. SULFASALAZINE [Suspect]
     Active Substance: SULFASALAZINE
     Route: 048
  44. SULFASALAZINE [Suspect]
     Active Substance: SULFASALAZINE
     Route: 048
  45. PREDNISONE [Suspect]
     Active Substance: PREDNISONE
     Indication: Rheumatoid arthritis
     Route: 050
  46. PREDNISONE [Suspect]
     Active Substance: PREDNISONE
     Route: 048
  47. METHOTREXATE [Suspect]
     Active Substance: METHOTREXATE
     Indication: Rheumatoid arthritis
  48. METHOTREXATE [Suspect]
     Active Substance: METHOTREXATE
     Dosage: ROA: SUBCUTANEOUS USE, 500 MG, BID
  49. METHOTREXATE [Suspect]
     Active Substance: METHOTREXATE
     Dosage: ROA: SUBCUTANEOUS
  50. METHOTREXATE [Suspect]
     Active Substance: METHOTREXATE
  51. METHOTREXATE [Suspect]
     Active Substance: METHOTREXATE
     Dosage: ROA: ORAL, 25 MG, QW
  52. METHOTREXATE [Suspect]
     Active Substance: METHOTREXATE
     Dosage: ROA: ORAL USE, 2 DOSAGE FORM, QD
  53. METHOTREXATE [Suspect]
     Active Substance: METHOTREXATE
  54. METHOTREXATE [Suspect]
     Active Substance: METHOTREXATE
     Dosage: ROA: INTRA-ARTICULAR, 25 MG, QD
  55. METHOTREXATE [Suspect]
     Active Substance: METHOTREXATE
     Dosage: ROA: ORAL, 25 MG, QD
  56. METHOTREXATE [Suspect]
     Active Substance: METHOTREXATE
     Dosage: ROA: SUBCUTANEOUS, 20 MG, QW
  57. METHOTREXATE [Suspect]
     Active Substance: METHOTREXATE
     Dosage: ROA: ORAL, 15 MG, QD
  58. METHOTREXATE [Suspect]
     Active Substance: METHOTREXATE
  59. CHLORAPREP [Suspect]
     Active Substance: CHLORHEXIDINE GLUCONATE\ISOPROPYL ALCOHOL
     Indication: Product used for unknown indication
  60. CHLORAPREP [Suspect]
     Active Substance: CHLORHEXIDINE GLUCONATE\ISOPROPYL ALCOHOL
  61. OTEZLA [Suspect]
     Active Substance: APREMILAST
     Indication: Product used for unknown indication
  62. OTEZLA [Suspect]
     Active Substance: APREMILAST
  63. CETIRIZINE HYDROCHLORIDE\PSEUDOEPHEDRINE HYDROCHLORIDE [Suspect]
     Active Substance: CETIRIZINE HYDROCHLORIDE\PSEUDOEPHEDRINE HYDROCHLORIDE
     Indication: Rheumatoid arthritis
  64. CETIRIZINE HYDROCHLORIDE\PSEUDOEPHEDRINE HYDROCHLORIDE [Suspect]
     Active Substance: CETIRIZINE HYDROCHLORIDE\PSEUDOEPHEDRINE HYDROCHLORIDE
  65. DESOXIMETASONE [Suspect]
     Active Substance: DESOXIMETASONE
     Indication: Rheumatoid arthritis
  66. DESOXIMETASONE [Suspect]
     Active Substance: DESOXIMETASONE
  67. DESOXIMETASONE [Suspect]
     Active Substance: DESOXIMETASONE
  68. DESOXIMETASONE [Suspect]
     Active Substance: DESOXIMETASONE
  69. DESOXIMETASONE [Suspect]
     Active Substance: DESOXIMETASONE
  70. DESOXIMETASONE [Suspect]
     Active Substance: DESOXIMETASONE
     Dosage: ROA: ORAL, 25 MG, QW
  71. DESOXIMETASONE [Suspect]
     Active Substance: DESOXIMETASONE
  72. DESOXIMETASONE [Suspect]
     Active Substance: DESOXIMETASONE
  73. XELJANZ [Suspect]
     Active Substance: TOFACITINIB CITRATE
     Indication: Psoriatic arthropathy
     Dosage: ROA: UNKNOWN, 10 MG, QD
  74. XELJANZ [Suspect]
     Active Substance: TOFACITINIB CITRATE
     Indication: Rheumatoid arthritis
     Dosage: ROA:ORAL 5 MG, QW
  75. XELJANZ [Suspect]
     Active Substance: TOFACITINIB CITRATE
  76. XELJANZ [Suspect]
     Active Substance: TOFACITINIB CITRATE
  77. STELARA [Suspect]
     Active Substance: USTEKINUMAB
     Indication: Product used for unknown indication
  78. STELARA [Suspect]
     Active Substance: USTEKINUMAB
     Indication: Psoriatic arthropathy
  79. STELARA [Suspect]
     Active Substance: USTEKINUMAB
  80. STELARA [Suspect]
     Active Substance: USTEKINUMAB
  81. STELARA [Suspect]
     Active Substance: USTEKINUMAB
  82. CETIRIZINE HYDROCHLORIDE\PSEUDOEPHEDRINE HYDROCHLORIDE [Suspect]
     Active Substance: CETIRIZINE HYDROCHLORIDE\PSEUDOEPHEDRINE HYDROCHLORIDE
     Indication: Rheumatoid arthritis
  83. HYDROCORTISONE [Suspect]
     Active Substance: HYDROCORTISONE
     Indication: Rheumatoid arthritis
     Route: 058
  84. FLUMETHASONE PIVALATE [Suspect]
     Active Substance: FLUMETHASONE PIVALATE
     Indication: Rheumatoid arthritis
     Route: 050
  85. FLUMETHASONE PIVALATE [Suspect]
     Active Substance: FLUMETHASONE PIVALATE
     Route: 058
  86. TRAMADOL HYDROCHLORIDE [Suspect]
     Active Substance: TRAMADOL HYDROCHLORIDE
     Indication: Product used for unknown indication
  87. TRAMADOL HYDROCHLORIDE [Suspect]
     Active Substance: TRAMADOL HYDROCHLORIDE
  88. ACETAMINOPHEN\CODEINE PHOSPHATE [Suspect]
     Active Substance: ACETAMINOPHEN\CODEINE PHOSPHATE
     Indication: Rheumatoid arthritis
     Route: 050
  89. RITUXIMAB [Suspect]
     Active Substance: RITUXIMAB
     Indication: Rheumatoid arthritis
     Route: 058
  90. RITUXIMAB [Suspect]
     Active Substance: RITUXIMAB
     Route: 058
  91. PREGABALIN [Suspect]
     Active Substance: PREGABALIN
     Indication: Product used for unknown indication
  92. PREGABALIN [Suspect]
     Active Substance: PREGABALIN
  93. INFLIXIMAB [Suspect]
     Active Substance: INFLIXIMAB
     Indication: Rheumatoid arthritis
  94. INFLIXIMAB [Suspect]
     Active Substance: INFLIXIMAB
  95. PREDNISONE [Suspect]
     Active Substance: PREDNISONE
     Indication: Rheumatoid arthritis
  96. PREDNISONE [Suspect]
     Active Substance: PREDNISONE
     Indication: Condition aggravated
  97. PREDNISONE [Suspect]
     Active Substance: PREDNISONE
     Indication: Psoriatic arthropathy
  98. PREDNISONE [Suspect]
     Active Substance: PREDNISONE
  99. PREDNISONE [Suspect]
     Active Substance: PREDNISONE
  100. PREDNISONE [Suspect]
     Active Substance: PREDNISONE
  101. PREDNISONE [Suspect]
     Active Substance: PREDNISONE
  102. PREDNISONE [Suspect]
     Active Substance: PREDNISONE
     Indication: Rheumatoid arthritis
     Route: 050
  103. ACETAMINOPHEN AND CODEINE [Suspect]
     Active Substance: ACETAMINOPHEN\CODEINE PHOSPHATE
     Indication: Rheumatoid arthritis
     Route: 048
  104. FOSAMAX [Suspect]
     Active Substance: ALENDRONATE SODIUM
     Indication: Rheumatoid arthritis
  105. PREDNISONE [Suspect]
     Active Substance: PREDNISONE
     Indication: Rheumatoid arthritis
  106. PREDNISONE [Suspect]
     Active Substance: PREDNISONE
  107. HYDROCORTISONE BUTYRATE [Suspect]
     Active Substance: HYDROCORTISONE BUTYRATE
     Indication: Rheumatoid arthritis
  108. HYDROCORTISONE BUTYRATE [Suspect]
     Active Substance: HYDROCORTISONE BUTYRATE
  109. HYDROCORTISONE BUTYRATE [Suspect]
     Active Substance: HYDROCORTISONE BUTYRATE
  110. HYDROCORTISONE BUTYRATE [Suspect]
     Active Substance: HYDROCORTISONE BUTYRATE
  111. MYCOPHENOLATE MOFETIL [Suspect]
     Active Substance: MYCOPHENOLATE MOFETIL
     Indication: Product used for unknown indication
  112. MYCOPHENOLATE MOFETIL [Suspect]
     Active Substance: MYCOPHENOLATE MOFETIL
  113. ENBREL [Suspect]
     Active Substance: ETANERCEPT
     Indication: Rheumatoid arthritis
     Dosage: ROA: OTHER, 20 MG, QW
  114. ENBREL [Suspect]
     Active Substance: ETANERCEPT
     Indication: Psoriatic arthropathy
     Dosage: ROA: SUBCUTANEOUS, 50 MG, QW
  115. LEFLUNOMIDE [Suspect]
     Active Substance: LEFLUNOMIDE
     Indication: Rheumatoid arthritis
     Route: 048
  116. HUMIRA [Suspect]
     Active Substance: ADALIMUMAB
     Indication: Psoriatic arthropathy
     Route: 058
  117. HUMIRA [Suspect]
     Active Substance: ADALIMUMAB
     Indication: Rheumatoid arthritis
     Route: 058
  118. HUMIRA [Suspect]
     Active Substance: ADALIMUMAB
     Route: 058
  119. HUMIRA [Suspect]
     Active Substance: ADALIMUMAB
     Indication: Psoriatic arthropathy
     Route: 050
  120. HUMIRA [Suspect]
     Active Substance: ADALIMUMAB
     Indication: Rheumatoid arthritis
  121. COSENTYX [Concomitant]
     Active Substance: SECUKINUMAB
     Indication: Product used for unknown indication
  122. COSENTYX [Suspect]
     Active Substance: SECUKINUMAB
     Indication: Psoriatic arthropathy
  123. COSENTYX [Suspect]
     Active Substance: SECUKINUMAB
     Indication: Rheumatoid arthritis
  124. COSENTYX [Suspect]
     Active Substance: SECUKINUMAB
  125. COSENTYX [Suspect]
     Active Substance: SECUKINUMAB
  126. SULFAMETHOXAZOLE\TRIMETHOPRIM [Suspect]
     Active Substance: SULFAMETHOXAZOLE\TRIMETHOPRIM
     Indication: Product used for unknown indication
  127. DICLOFENAC SODIUM [Suspect]
     Active Substance: DICLOFENAC SODIUM
     Indication: Product used for unknown indication
  128. DICLOFENAC SODIUM [Suspect]
     Active Substance: DICLOFENAC SODIUM
  129. DICLOFENAC SODIUM [Suspect]
     Active Substance: DICLOFENAC SODIUM
  130. DICLOFENAC SODIUM [Suspect]
     Active Substance: DICLOFENAC SODIUM
  131. DICLOFENAC SODIUM [Suspect]
     Active Substance: DICLOFENAC SODIUM
  132. TRIAMCINOLONE ACETONIDE [Suspect]
     Active Substance: TRIAMCINOLONE ACETONIDE
     Indication: Rheumatoid arthritis
     Route: 050
  133. TRIAMCINOLONE ACETONIDE [Suspect]
     Active Substance: TRIAMCINOLONE ACETONIDE
     Route: 014
  134. SIMPONI [Suspect]
     Active Substance: GOLIMUMAB
     Indication: Psoriatic arthropathy
  135. SIMPONI [Suspect]
     Active Substance: GOLIMUMAB
     Indication: Rheumatoid arthritis
  136. SIMPONI [Suspect]
     Active Substance: GOLIMUMAB
  137. SIMPONI [Suspect]
     Active Substance: GOLIMUMAB
  138. SIMPONI [Suspect]
     Active Substance: GOLIMUMAB
  139. SIMPONI [Suspect]
     Active Substance: GOLIMUMAB
  140. SIMPONI [Suspect]
     Active Substance: GOLIMUMAB
  141. OXYCODONE [Suspect]
     Active Substance: OXYCODONE
     Indication: Product used for unknown indication
  142. OXYCODONE [Suspect]
     Active Substance: OXYCODONE
  143. CYANOCOBALAMIN [Suspect]
     Active Substance: CYANOCOBALAMIN
     Indication: Product used for unknown indication
  144. CYANOCOBALAMIN [Suspect]
     Active Substance: CYANOCOBALAMIN
  145. PERIOGARD [Suspect]
     Active Substance: CHLORHEXIDINE GLUCONATE
     Indication: Product used for unknown indication
     Route: 050
  146. PSEUDOEPHEDRINE [Suspect]
     Active Substance: PSEUDOEPHEDRINE
     Indication: Rheumatoid arthritis
  147. PSEUDOEPHEDRINE [Suspect]
     Active Substance: PSEUDOEPHEDRINE
  148. NAPROXEN SODIUM [Suspect]
     Active Substance: NAPROXEN SODIUM
     Indication: Rheumatoid arthritis
  149. NAPROXEN SODIUM [Suspect]
     Active Substance: NAPROXEN SODIUM
  150. CETIRIZINE HYDROCHLORIDE [Suspect]
     Active Substance: CETIRIZINE HYDROCHLORIDE
     Indication: Off label use
  151. CETIRIZINE HYDROCHLORIDE [Suspect]
     Active Substance: CETIRIZINE HYDROCHLORIDE
     Indication: Rheumatoid arthritis
  152. CETIRIZINE HYDROCHLORIDE [Suspect]
     Active Substance: CETIRIZINE HYDROCHLORIDE
     Dosage: ROA: ORAL, 10 MG, QD (1 EVERY 1 DAYS)
  153. CETIRIZINE HYDROCHLORIDE [Suspect]
     Active Substance: CETIRIZINE HYDROCHLORIDE
  154. CETIRIZINE HYDROCHLORIDE [Suspect]
     Active Substance: CETIRIZINE HYDROCHLORIDE
     Route: 048
  155. CETIRIZINE HYDROCHLORIDE [Suspect]
     Active Substance: CETIRIZINE HYDROCHLORIDE
     Route: 048
  156. CHLORHEXIDINE [Suspect]
     Active Substance: CHLORHEXIDINE
     Indication: Product used for unknown indication
  157. CHLORHEXIDINE [Suspect]
     Active Substance: CHLORHEXIDINE
  158. CHLORHEXIDINE [Suspect]
     Active Substance: CHLORHEXIDINE
  159. CHLORHEXIDINE [Suspect]
     Active Substance: CHLORHEXIDINE
  160. CHLORHEXIDINE [Suspect]
     Active Substance: CHLORHEXIDINE
  161. CHLORHEXIDINE [Suspect]
     Active Substance: CHLORHEXIDINE
  162. PREDNISONE [Suspect]
     Active Substance: PREDNISONE
     Indication: Rheumatoid arthritis
  163. SULFAMETHOXAZOLE AND TRIMETHOPRIM [Suspect]
     Active Substance: SULFAMETHOXAZOLE\TRIMETHOPRIM
     Indication: Product used for unknown indication
  164. PHTHALYLSULFATHIAZOLE [Suspect]
     Active Substance: PHTHALYLSULFATHIAZOLE
     Indication: Rheumatoid arthritis
  165. PHTHALYLSULFATHIAZOLE [Suspect]
     Active Substance: PHTHALYLSULFATHIAZOLE
  166. PHTHALYLSULFATHIAZOLE [Suspect]
     Active Substance: PHTHALYLSULFATHIAZOLE
  167. PHTHALYLSULFATHIAZOLE [Suspect]
     Active Substance: PHTHALYLSULFATHIAZOLE
  168. PHTHALYLSULFATHIAZOLE [Suspect]
     Active Substance: PHTHALYLSULFATHIAZOLE
  169. PHTHALYLSULFATHIAZOLE [Suspect]
     Active Substance: PHTHALYLSULFATHIAZOLE
  170. ORENCIA [Suspect]
     Active Substance: ABATACEPT
     Indication: Rheumatoid arthritis
     Route: 058
  171. ORENCIA [Suspect]
     Active Substance: ABATACEPT
     Route: 058
  172. ISOPROPYL ALCOHOL [Suspect]
     Active Substance: ISOPROPYL ALCOHOL
     Indication: Product used for unknown indication
  173. ISOPROPYL ALCOHOL [Suspect]
     Active Substance: ISOPROPYL ALCOHOL
  174. HYDROXYCHLOROQUINE SULFATE [Suspect]
     Active Substance: HYDROXYCHLOROQUINE SULFATE
     Indication: Systemic lupus erythematosus
     Dosage: ROA: SUBCUTANEOUS, 400 MG, QD
  175. HYDROXYCHLOROQUINE SULFATE [Suspect]
     Active Substance: HYDROXYCHLOROQUINE SULFATE
     Indication: Rheumatoid arthritis
  176. HYDROXYCHLOROQUINE SULFATE [Suspect]
     Active Substance: HYDROXYCHLOROQUINE SULFATE
     Dosage: ROA: ORAL, 400 MG, QD
  177. HYDROXYCHLOROQUINE SULFATE [Suspect]
     Active Substance: HYDROXYCHLOROQUINE SULFATE
     Dosage: 40 MG, QD
  178. HYDROXYCHLOROQUINE SULFATE [Suspect]
     Active Substance: HYDROXYCHLOROQUINE SULFATE
     Dosage: ROA:SUBCUTANEOUS,  40 MG, QD
  179. SIMPONI [Suspect]
     Active Substance: GOLIMUMAB
     Indication: Psoriatic arthropathy
     Route: 050
  180. SIMPONI [Suspect]
     Active Substance: GOLIMUMAB
     Indication: Rheumatoid arthritis
  181. FOLIC ACID [Suspect]
     Active Substance: FOLIC ACID
     Indication: Rheumatoid arthritis
  182. FOLIC ACID [Suspect]
     Active Substance: FOLIC ACID
  183. FOLIC ACID [Suspect]
     Active Substance: FOLIC ACID
  184. FOLIC ACID [Suspect]
     Active Substance: FOLIC ACID
  185. FOLIC ACID [Suspect]
     Active Substance: FOLIC ACID
  186. FOLIC ACID [Suspect]
     Active Substance: FOLIC ACID
  187. FOLIC ACID [Suspect]
     Active Substance: FOLIC ACID
  188. CIMZIA [Suspect]
     Active Substance: CERTOLIZUMAB PEGOL
     Indication: Product used for unknown indication
  189. CIMZIA [Suspect]
     Active Substance: CERTOLIZUMAB PEGOL
     Indication: Rheumatoid arthritis
  190. RITUXAN [Suspect]
     Active Substance: RITUXIMAB
     Indication: Rheumatoid arthritis
     Route: 050
  191. RITUXAN [Suspect]
     Active Substance: RITUXIMAB
     Route: 050
  192. CETIRIZINE [Suspect]
     Active Substance: CETIRIZINE HYDROCHLORIDE
     Indication: Rheumatoid arthritis
     Dosage: 10 MG, QD (1 EVERY 1 DAYS)
     Route: 050
  193. CETIRIZINE [Suspect]
     Active Substance: CETIRIZINE HYDROCHLORIDE
     Indication: Off label use
     Route: 050
  194. CALTRATE [Suspect]
     Active Substance: CALCIUM CARBONATE
     Indication: Product used for unknown indication
  195. CORTISONE [Suspect]
     Active Substance: CORTISONE
     Indication: Rheumatoid arthritis
  196. CORTISONE [Suspect]
     Active Substance: CORTISONE
  197. FOLIC ACID [Suspect]
     Active Substance: FOLIC ACID
     Indication: Rheumatoid arthritis
  198. FOLIC ACID [Suspect]
     Active Substance: FOLIC ACID
  199. FOLIC ACID [Suspect]
     Active Substance: FOLIC ACID
  200. FOLIC ACID [Suspect]
     Active Substance: FOLIC ACID
  201. FOLIC ACID [Suspect]
     Active Substance: FOLIC ACID
  202. FOLIC ACID [Suspect]
     Active Substance: FOLIC ACID
  203. FOLIC ACID [Suspect]
     Active Substance: FOLIC ACID
  204. CALCIUM GLUBIONATE [Suspect]
     Active Substance: CALCIUM GLUBIONATE
     Indication: Product used for unknown indication
  205. HYDROCORTISONE [Suspect]
     Active Substance: HYDROCORTISONE
     Indication: Rheumatoid arthritis
     Route: 050

REACTIONS (52)
  - Type 2 diabetes mellitus [Fatal]
  - Facet joint syndrome [Fatal]
  - Systemic lupus erythematosus [Fatal]
  - Urticaria [Fatal]
  - Lip dry [Fatal]
  - Rheumatic fever [Fatal]
  - Hepatic enzyme increased [Fatal]
  - Injury [Fatal]
  - C-reactive protein [Fatal]
  - Folliculitis [Fatal]
  - Helicobacter infection [Fatal]
  - Ill-defined disorder [Fatal]
  - General physical health deterioration [Fatal]
  - Dry mouth [Fatal]
  - Sinusitis [Fatal]
  - Insomnia [Fatal]
  - Rheumatoid factor positive [Fatal]
  - Hypersensitivity [Fatal]
  - Wound [Fatal]
  - Malaise [Fatal]
  - Hypoaesthesia [Fatal]
  - Rash [Fatal]
  - Joint swelling [Fatal]
  - Hand deformity [Fatal]
  - Joint range of motion decreased [Fatal]
  - Liver disorder [Fatal]
  - Wheezing [Fatal]
  - Glossodynia [Fatal]
  - Vomiting [Fatal]
  - Pruritus [Fatal]
  - Fibromyalgia [Fatal]
  - Irritable bowel syndrome [Fatal]
  - Swollen joint count increased [Fatal]
  - Hypertension [Fatal]
  - Synovitis [Fatal]
  - Impaired healing [Fatal]
  - Sleep disorder due to general medical condition, insomnia type [Fatal]
  - Rheumatoid arthritis [Fatal]
  - Stomatitis [Fatal]
  - Sciatica [Fatal]
  - Infusion related reaction [Fatal]
  - Psoriatic arthropathy [Fatal]
  - Duodenal ulcer perforation [Fatal]
  - Sleep disorder [Fatal]
  - Mobility decreased [Fatal]
  - Fatigue [Fatal]
  - Road traffic accident [Fatal]
  - Weight increased [Fatal]
  - Inflammation [Fatal]
  - Infection [Fatal]
  - Swelling [Fatal]
  - Pyrexia [Fatal]
